FAERS Safety Report 7575666-8 (Version None)
Quarter: 2011Q2

REPORT INFORMATION
  Report Type: 
  Country: None (occurrence: None)
  Receive Date: 20110628
  Receipt Date: 20110616
  Transmission Date: 20111010
  Serious: Yes (Other)
  Sender: FDA-Public Use
  Company Number: FR-BIOGENIDEC-2010BI019714

PATIENT
  Age: 52 Year
  Sex: Female

DRUGS (17)
  1. ANTIDEPRESSANTS (NOS) [Concomitant]
  2. MUSCLE RELAXANT (NOS) [Concomitant]
  3. NEUROLEPTIC (NOS) [Concomitant]
  4. PREGABALINE [Concomitant]
     Indication: DEPRESSION
  5. EFFEXOR [Concomitant]
  6. ACETAMINOPHEN [Concomitant]
  7. KETOPROFEN [Concomitant]
  8. ANALGESIC [Concomitant]
  9. ANTICOAGULANT (NOS) [Concomitant]
  10. LEXOMIL [Concomitant]
     Indication: DEPRESSION
  11. ALPRAZOLAM [Concomitant]
  12. ANTI-INFECTIVE (NOS) [Concomitant]
  13. PROZAC [Concomitant]
     Indication: DEPRESSION
  14. ALFUZOSIN HCL [Concomitant]
     Indication: DEPRESSION
  15. CLONAZEPAM [Concomitant]
  16. MODAFINIL [Concomitant]
     Indication: DEPRESSION
  17. TYSABRI [Suspect]
     Indication: MULTIPLE SCLEROSIS
     Route: 042
     Dates: start: 20070809, end: 20100416

REACTIONS (1)
  - NUCLEAR MAGNETIC RESONANCE IMAGING ABNORMAL [None]
